FAERS Safety Report 7658724-9 (Version None)
Quarter: 2011Q3

REPORT INFORMATION
  Report Type: 
  Country: None (occurrence: None)
  Receive Date: 20110802
  Receipt Date: 20110718
  Transmission Date: 20111222
  Serious: Yes (Disabling, Other)
  Sender: FDA-Public Use
  Company Number: 2011MA009029

PATIENT
  Sex: Female

DRUGS (3)
  1. METOCLOPRAMIDE [Suspect]
     Indication: ABDOMINAL DISTENSION
     Dates: end: 20090201
  2. METOCLOPRAMIDE [Suspect]
     Indication: IMPAIRED GASTRIC EMPTYING
     Dates: end: 20090201
  3. METOCLOPRAMIDE [Suspect]
     Indication: DYSPEPSIA
     Dates: end: 20090201

REACTIONS (10)
  - INCORRECT DRUG ADMINISTRATION DURATION [None]
  - NERVOUS SYSTEM DISORDER [None]
  - TARDIVE DYSKINESIA [None]
  - MULTIPLE INJURIES [None]
  - TOXICITY TO VARIOUS AGENTS [None]
  - EXTRAPYRAMIDAL DISORDER [None]
  - MOVEMENT DISORDER [None]
  - ECONOMIC PROBLEM [None]
  - GENERAL PHYSICAL CONDITION ABNORMAL [None]
  - EMOTIONAL DISTRESS [None]
